FAERS Safety Report 4573798-X (Version None)
Quarter: 2005Q1

REPORT INFORMATION
  Report Type: 
  Country: None (occurrence: None)
  Receive Date: 20050203
  Receipt Date: 20050118
  Transmission Date: 20050727
  Serious: Yes (Other)
  Sender: FDA-Public Use
  Company Number: 9850

PATIENT
  Age: 34 Year
  Sex: Male

DRUGS (4)
  1. VINCRISTINE [Suspect]
     Indication: EWING'S SARCOMA
  2. DOXORUBICIN [Suspect]
     Indication: EWING'S SARCOMA
     Dosage: 405 MG/M2 TOTAL
  3. ACTINOMYCIN D [Suspect]
     Indication: EWING'S SARCOMA
  4. CYCLOPHOSPHAMIDE [Suspect]
     Indication: EWING'S SARCOMA

REACTIONS (3)
  - ACUTE LYMPHOCYTIC LEUKAEMIA [None]
  - CHROMOSOME ABNORMALITY [None]
  - TRISOMY 8 [None]
